FAERS Safety Report 25259731 (Version 1)
Quarter: 2025Q2

REPORT INFORMATION
  Report Type: Spontaneous
  Country: US (occurrence: None)
  Receive Date: 20250430
  Receipt Date: 20250430
  Transmission Date: 20250717
  Serious: No
  Sender: FDA-CTU
  Company Number: None

PATIENT

DRUGS (1)
  1. AMIODARONE [Suspect]
     Active Substance: AMIODARONE

REACTIONS (6)
  - Incorrect drug administration rate [None]
  - Bradycardia [None]
  - Hypotension [None]
  - Device infusion issue [None]
  - Device issue [None]
  - Device physical property issue [None]

NARRATIVE: CASE EVENT DATE: 20241121
